FAERS Safety Report 8932441 (Version 3)
Quarter: 2013Q2

REPORT INFORMATION
  Report Type: Spontaneous
  Country: US (occurrence: US)
  Receive Date: 20121128
  Receipt Date: 20130530
  Transmission Date: 20140414
  Serious: Yes (Hospitalization)
  Sender: FDA-Public Use
  Company Number: US-ELI_LILLY_AND_COMPANY-US201211006222

PATIENT
  Sex: Female
  Weight: 61.68 kg

DRUGS (12)
  1. FORTEO [Suspect]
     Indication: OSTEOPOROSIS
     Dosage: UNK UNK, QD
     Dates: start: 201210
  2. OXYCODONE [Concomitant]
     Dosage: 5/325 MG, TID
  3. GABAPENTIN [Concomitant]
     Dosage: 300 MG, TID
  4. LISINOPRIL [Concomitant]
     Dosage: UNK, QD
  5. CARAFATE [Concomitant]
     Dosage: UNK, TID
  6. PROSTAT [Concomitant]
     Dosage: UNK, BID
  7. LIPITOR [Concomitant]
     Dosage: 20 MG, QD
  8. MULTIVITAMIN [Concomitant]
  9. VITAMIN C [Concomitant]
  10. IRON [Concomitant]
  11. BOOST [Concomitant]
     Dosage: UNK, BID
  12. TYLENOL                            /00020001/ [Concomitant]
     Dosage: 325 MG, PRN

REACTIONS (3)
  - Wound infection [Recovered/Resolved]
  - Spinal fracture [Unknown]
  - Pain [Unknown]
